FAERS Safety Report 5317070-9 (Version None)
Quarter: 2007Q2

REPORT INFORMATION
  Report Type: 
  Country: None (occurrence: None)
  Receive Date: 20070504
  Receipt Date: 20070423
  Transmission Date: 20071010
  Serious: Yes (Other)
  Sender: FDA-Public Use
  Company Number: DE-ROCHE-494544

PATIENT
  Sex: Male

DRUGS (2)
  1. PEGASYS [Suspect]
     Indication: HEPATITIS C
     Route: 065
     Dates: end: 20070201
  2. COPEGUS [Suspect]
     Indication: HEPATITIS C
     Route: 065
     Dates: end: 20070201

REACTIONS (2)
  - DIABETES MELLITUS [None]
  - HAEMOCHROMATOSIS [None]
